FAERS Safety Report 11577010 (Version 1)
Quarter: 2015Q3

REPORT INFORMATION
  Report Type: Spontaneous
  Country: CN (occurrence: CN)
  Receive Date: 20150930
  Receipt Date: 20150930
  Transmission Date: 20151125
  Serious: Yes (Life-Threatening, Other)
  Sender: FDA-Public Use
  Company Number: CN-GLAXOSMITHKLINE-CN2015GSK138688

PATIENT
  Age: 66 Year
  Sex: Female
  Weight: 48 kg

DRUGS (4)
  1. LAMICTAL [Suspect]
     Active Substance: LAMOTRIGINE
     Dosage: 100 UNK, UNK
     Dates: start: 20150925
  2. LAMICTAL [Suspect]
     Active Substance: LAMOTRIGINE
     Dosage: UNK UNK, SINGLE
     Dates: start: 20150928
  3. LAMICTAL [Suspect]
     Active Substance: LAMOTRIGINE
     Indication: EPILEPSY
     Dosage: 50 MG, UNK
     Route: 048
     Dates: start: 20140825
  4. LAMICTAL [Suspect]
     Active Substance: LAMOTRIGINE
     Dosage: 75 MG, UNK
     Route: 048
     Dates: start: 201507

REACTIONS (5)
  - Vomiting [Not Recovered/Not Resolved]
  - Blood pressure increased [Not Recovered/Not Resolved]
  - Somnolence [Not Recovered/Not Resolved]
  - Coma [Not Recovered/Not Resolved]
  - Overdose [Not Recovered/Not Resolved]

NARRATIVE: CASE EVENT DATE: 20150928
